FAERS Safety Report 17289236 (Version 1)
Quarter: 2020Q1

REPORT INFORMATION
  Report Type: Spontaneous
  Country: US (occurrence: US)
  Receive Date: 20200120
  Receipt Date: 20200120
  Transmission Date: 20200409
  Serious: Yes (Hospitalization)
  Sender: FDA-Public Use
  Company Number: US-ASTRAZENECA-2020SE02276

PATIENT
  Age: 326 Day
  Sex: Male
  Weight: 8.6 kg

DRUGS (4)
  1. SYNAGIS [Suspect]
     Active Substance: PALIVIZUMAB
     Indication: ACUTE RESPIRATORY FAILURE
     Route: 030
     Dates: start: 20191106
  2. SYNAGIS [Suspect]
     Active Substance: PALIVIZUMAB
     Indication: ACUTE RESPIRATORY FAILURE
     Dosage: 1.22 ML
     Route: 030
     Dates: start: 20191205
  3. GABAPENTIN. [Concomitant]
     Active Substance: GABAPENTIN
     Indication: HYPOXIC-ISCHAEMIC ENCEPHALOPATHY
     Dates: start: 20190501
  4. LANSOPRAZOLE. [Concomitant]
     Active Substance: LANSOPRAZOLE
     Indication: GASTROOESOPHAGEAL REFLUX DISEASE
     Dates: start: 20190315

REACTIONS (1)
  - Infantile spasms [Not Recovered/Not Resolved]

NARRATIVE: CASE EVENT DATE: 20191202
